FAERS Safety Report 9851054 (Version 1)
Quarter: 2014Q1

REPORT INFORMATION
  Report Type: Spontaneous
  Country: BE (occurrence: BE)
  Receive Date: 20140128
  Receipt Date: 20140128
  Transmission Date: 20141002
  Serious: Yes (Other)
  Sender: FDA-Public Use
  Company Number: BE-MYLANLABS-2014S1001102

PATIENT
  Age: 69 Year
  Sex: Female

DRUGS (4)
  1. CIPROFLOXACIN [Suspect]
     Indication: URINARY TRACT INFECTION
     Route: 048
  2. AMOXICLAV /01000301/ [Concomitant]
     Indication: PRODUCT USED FOR UNKNOWN INDICATION
  3. DAFALGAN [Concomitant]
     Indication: PRODUCT USED FOR UNKNOWN INDICATION
  4. SOLUMEDROL [Concomitant]
     Indication: PRODUCT USED FOR UNKNOWN INDICATION

REACTIONS (1)
  - Pulmonary toxicity [Recovering/Resolving]
